FAERS Safety Report 6486166-0 (Version None)
Quarter: 2009Q4

REPORT INFORMATION
  Report Type: 
  Country: None (occurrence: None)
  Receive Date: 20091207
  Receipt Date: 20091123
  Transmission Date: 20100525
  Serious: Yes (Hospitalization)
  Sender: FDA-Public Use
  Company Number: 2009AC000113

PATIENT
  Sex: Male

DRUGS (10)
  1. DIGOXIN [Suspect]
     Dosage: PO
     Route: 048
     Dates: start: 19970101
  2. TERAZOSIN HCL [Concomitant]
  3. GLYBURIDE [Concomitant]
  4. LORAZEPAM [Concomitant]
  5. LASIX [Concomitant]
  6. DIOVAN [Concomitant]
  7. VENTOLIN [Concomitant]
  8. ATROVENT [Concomitant]
  9. RESTORIL [Concomitant]
  10. PREDNISONE [Concomitant]

REACTIONS (34)
  - ANEURYSM [None]
  - ANXIETY [None]
  - ANXIETY DISORDER [None]
  - BENIGN PROSTATIC HYPERPLASIA [None]
  - BIPOLAR DISORDER [None]
  - CANDIDIASIS [None]
  - CARDIAC FAILURE CONGESTIVE [None]
  - CHRONIC OBSTRUCTIVE PULMONARY DISEASE [None]
  - CONDITION AGGRAVATED [None]
  - CONFUSIONAL STATE [None]
  - CORONARY ARTERY DISEASE [None]
  - DELIRIUM [None]
  - DIABETES MELLITUS [None]
  - DYSPHAGIA [None]
  - ECONOMIC PROBLEM [None]
  - HEPATIC VEIN THROMBOSIS [None]
  - HYPERGLYCAEMIA [None]
  - HYPERTENSION [None]
  - ISCHAEMIC HEPATITIS [None]
  - LETHARGY [None]
  - LEUKOCYTOSIS [None]
  - MENTAL STATUS CHANGES [None]
  - MULTIPLE INJURIES [None]
  - PANCREATITIS [None]
  - PNEUMONIA [None]
  - PRODUCTIVE COUGH [None]
  - RENAL FAILURE ACUTE [None]
  - RESPIRATORY FAILURE [None]
  - SEPSIS [None]
  - SINUSITIS [None]
  - SLEEP DISORDER [None]
  - TACHYPNOEA [None]
  - UNRESPONSIVE TO STIMULI [None]
  - URINARY TRACT INFECTION [None]
